FAERS Safety Report 11448166 (Version 2)
Quarter: 2015Q4

REPORT INFORMATION
  Report Type: Spontaneous
  Country: CA (occurrence: CA)
  Receive Date: 20150902
  Receipt Date: 20151105
  Transmission Date: 20160304
  Serious: Yes (Hospitalization)
  Sender: FDA-Public Use
  Company Number: US-ASTRAZENECA-2015SE84352

PATIENT
  Age: 32059 Day
  Sex: Male

DRUGS (1)
  1. ZOLADEX LA [Suspect]
     Active Substance: GOSERELIN ACETATE
     Indication: PROSTATE CANCER
     Route: 058
     Dates: start: 20080610

REACTIONS (3)
  - Cerebral infarction [Not Recovered/Not Resolved]
  - Faecal incontinence [Unknown]
  - Vascular cognitive impairment [Not Recovered/Not Resolved]

NARRATIVE: CASE EVENT DATE: 20150815
